FAERS Safety Report 14675348 (Version 2)
Quarter: 2018Q2

REPORT INFORMATION
  Report Type: Spontaneous
  Country: US (occurrence: US)
  Receive Date: 20180323
  Receipt Date: 20180403
  Transmission Date: 20180711
  Serious: No
  Sender: FDA-Public Use
  Company Number: US-TEVA-2018-US-859013

PATIENT
  Age: 3 Year

DRUGS (1)
  1. OXYBUTYNIN. [Suspect]
     Active Substance: OXYBUTYNIN CHLORIDE
     Indication: ENURESIS
     Dosage: (EVERY 4 DAYS)
     Route: 062

REACTIONS (2)
  - Off label use [Unknown]
  - Drug prescribing error [Unknown]
